FAERS Safety Report 4590369-X (Version None)
Quarter: 2005Q1

REPORT INFORMATION
  Report Type: 
  Country: None (occurrence: None)
  Receive Date: 20050224
  Receipt Date: 20050113
  Transmission Date: 20050727
  Serious: Yes (Other)
  Sender: FDA-Public Use
  Company Number: US-MERCK-0501USA02757

PATIENT

DRUGS (1)
  1. ELSPAR [Suspect]
     Route: 065

REACTIONS (1)
  - PANCREATITIS HAEMORRHAGIC [None]
